FAERS Safety Report 18565102 (Version 2)
Quarter: 2020Q4

REPORT INFORMATION
  Report Type: Spontaneous
  Country: US (occurrence: US)
  Receive Date: 20201201
  Receipt Date: 20201207
  Transmission Date: 20210114
  Serious: Yes (Hospitalization, Other)
  Sender: FDA-Public Use
  Company Number: US-AKCEA THERAPEUTICS-2020IS001609

PATIENT
  Age: 74 Year
  Sex: Female
  Weight: 45.5 kg

DRUGS (11)
  1. URSODIOL. [Concomitant]
     Active Substance: URSODIOL
     Route: 048
  2. KLOR-CON M20 [Concomitant]
     Active Substance: POTASSIUM CHLORIDE
     Route: 048
  3. TORSEMIDE. [Concomitant]
     Active Substance: TORSEMIDE
     Route: 048
  4. SILDENAFIL. [Concomitant]
     Active Substance: SILDENAFIL
     Route: 048
  5. ISSD (INTEGRATED SYRINGE SAFETY DEVICE) [Suspect]
     Active Substance: DEVICE
  6. PRAVASTATIN SODIUM. [Concomitant]
     Active Substance: PRAVASTATIN SODIUM
     Route: 048
  7. METFORMIN ER [Concomitant]
     Active Substance: METFORMIN HYDROCHLORIDE
  8. TEGSEDI [Suspect]
     Active Substance: INOTERSEN SODIUM
     Indication: HEREDITARY NEUROPATHIC AMYLOIDOSIS
     Route: 058
  9. AMIODARONE HCL [Concomitant]
     Active Substance: AMIODARONE HYDROCHLORIDE
     Route: 048
  10. PRADAXA [Concomitant]
     Active Substance: DABIGATRAN ETEXILATE MESYLATE
     Route: 048
  11. ACETAMINOPHEN. [Concomitant]
     Active Substance: ACETAMINOPHEN
     Route: 048

REACTIONS (2)
  - Pneumonia [Unknown]
  - Haemoptysis [Unknown]
